FAERS Safety Report 24857328 (Version 7)
Quarter: 2025Q3

REPORT INFORMATION
  Report Type: Report from Study
  Country: US (occurrence: US)
  Receive Date: 20250117
  Receipt Date: 20250716
  Transmission Date: 20251020
  Serious: Yes (Hospitalization, Other)
  Sender: UCB
  Company Number: US-UCBSA-2024067012

PATIENT
  Age: 73 Year
  Sex: Female

DRUGS (2)
  1. ROTIGOTINE [Suspect]
     Active Substance: ROTIGOTINE
     Indication: Restless legs syndrome
     Dosage: 4 MILLIGRAM, ONCE DAILY (QD)
     Route: 062
     Dates: start: 20230101, end: 20250428
  2. ROTIGOTINE [Suspect]
     Active Substance: ROTIGOTINE
     Route: 062

REACTIONS (8)
  - Eye laser surgery [Unknown]
  - Small intestinal obstruction [Recovered/Resolved]
  - Product ineffective [Unknown]
  - Product adhesion issue [Unknown]
  - Product use issue [Unknown]
  - Product dose omission issue [Unknown]
  - Off label use [Unknown]
  - Drug ineffective [Unknown]

NARRATIVE: CASE EVENT DATE: 20241121
